FAERS Safety Report 20159514 (Version 2)
Quarter: 2022Q3

REPORT INFORMATION
  Report Type: Report from Study
  Country: US (occurrence: None)
  Receive Date: 20211208
  Receipt Date: 20220805
  Transmission Date: 20221027
  Serious: Yes (Hospitalization)
  Sender: FDA-Public Use
  Company Number: US-ROCHE-2969345

PATIENT
  Age: 78 Year
  Sex: Female
  Weight: 95.5 kg

DRUGS (1)
  1. POLATUZUMAB VEDOTIN [Suspect]
     Active Substance: POLATUZUMAB VEDOTIN
     Indication: Diffuse large B-cell lymphoma
     Route: 042
     Dates: start: 20211109

REACTIONS (2)
  - Pneumothorax [Unknown]
  - Subcutaneous emphysema [Unknown]

NARRATIVE: CASE EVENT DATE: 20211115
